FAERS Safety Report 6703677-0 (Version None)
Quarter: 2010Q2

REPORT INFORMATION
  Report Type: 
  Country: None (occurrence: None)
  Receive Date: 20100430
  Receipt Date: 20100422
  Transmission Date: 20101027
  Serious: Yes (Hospitalization)
  Sender: FDA-Public Use
  Company Number: JP-BRISTOL-MYERS SQUIBB COMPANY-15081979

PATIENT
  Age: 65 Year
  Sex: Male
  Weight: 60 kg

DRUGS (12)
  1. ERBITUX [Suspect]
     Indication: RECTAL CANCER
     Dosage: 11NOV08-22DEC09:406 DAYS
     Route: 042
     Dates: start: 20081104, end: 20091222
  2. IRINOTECAN HYDROCHLORIDE [Suspect]
     Indication: RECTAL CANCER
     Dosage: 4NOV08-10JUL09 24JUL09-31JUL09:250MG:1/3 W(7DAYS) 14AUG09-22DEC09:250MG:1/2 W(130DAYS)
     Route: 042
     Dates: start: 20081104, end: 20091222
  3. DIPHENHYDRAMINE HCL [Concomitant]
     Indication: PREMEDICATION
     Dosage: TABS
     Route: 048
     Dates: start: 20081104, end: 20091222
  4. DEXAMETHASONE SODIUM PHOSPHATE [Concomitant]
     Indication: PREMEDICATION
     Route: 042
     Dates: start: 20081104, end: 20091222
  5. URSO 250 [Concomitant]
     Indication: PREMEDICATION
     Route: 048
     Dates: start: 20081104, end: 20091211
  6. KYTRIL [Concomitant]
     Indication: PREMEDICATION
     Route: 048
     Dates: start: 20081104, end: 20091211
  7. MAGNESIUM OXIDE [Concomitant]
     Indication: PREMEDICATION
     Route: 048
  8. SODIUM BICARBONATE [Concomitant]
     Indication: PREMEDICATION
     Route: 048
     Dates: start: 20081104, end: 20091211
  9. PRIMPERAN [Concomitant]
     Indication: PREMEDICATION
     Route: 048
     Dates: start: 20081104, end: 20091211
  10. GRANISETRON HCL [Concomitant]
     Indication: ANTIEMETIC SUPPORTIVE CARE
     Route: 042
     Dates: start: 20081104, end: 20090922
  11. DEPAKENE [Concomitant]
     Indication: HYPOAESTHESIA
     Route: 048
     Dates: start: 20091027, end: 20091229
  12. HYPERBARIC OXYGEN [Concomitant]
     Dates: start: 20091113, end: 20100204

REACTIONS (2)
  - DECREASED APPETITE [None]
  - MALAISE [None]
